FAERS Safety Report 10464219 (Version 1)
Quarter: 2014Q3

REPORT INFORMATION
  Report Type: Spontaneous
  Country: US (occurrence: US)
  Receive Date: 20140919
  Receipt Date: 20140919
  Transmission Date: 20150326
  Serious: Yes (Other)
  Sender: FDA-Public Use
  Company Number: US-ABBVIE-14P-163-1283596-00

PATIENT
  Age: 46 Year
  Sex: Male

DRUGS (1)
  1. ANDROGEL [Suspect]
     Active Substance: TESTOSTERONE
     Indication: BLOOD TESTOSTERONE DECREASED
     Dates: start: 201109, end: 201309

REACTIONS (6)
  - Emotional disorder [Unknown]
  - Economic problem [Unknown]
  - Injury [Unknown]
  - Myocardial infarction [Unknown]
  - Cerebrovascular accident [Unknown]
  - Pain [Unknown]

NARRATIVE: CASE EVENT DATE: 20130915
